FAERS Safety Report 6789870-X (Version None)
Quarter: 2010Q2

REPORT INFORMATION
  Report Type: 
  Country: None (occurrence: None)
  Receive Date: 20100624
  Receipt Date: 20100615
  Transmission Date: 20101027
  Serious: Yes (Other)
  Sender: FDA-Public Use
  Company Number: JP-PFIZER INC-2010068792

PATIENT
  Age: 59 Year
  Sex: Male

DRUGS (5)
  1. DOXAZOSIN MESYLATE [Suspect]
     Dosage: 2 MG, 2X/DAY
     Route: 048
  2. INDERAL [Suspect]
     Dosage: 30 MG, DAILY
     Route: 048
  3. ADALAT [Suspect]
     Dosage: 20 MG, DAILY
     Route: 048
  4. MICARDIS [Suspect]
     Dosage: 40 MG, DAILY
     Route: 048
  5. GASTER OD [Concomitant]
     Dosage: 20 MG DAILY
     Route: 048

REACTIONS (2)
  - CHEST DISCOMFORT [None]
  - CHEST PAIN [None]
